FAERS Safety Report 4700299-8 (Version None)
Quarter: 2005Q2

REPORT INFORMATION
  Report Type: 
  Country: None (occurrence: None)
  Receive Date: 20050627
  Receipt Date: 20041115
  Transmission Date: 20051028
  Serious: Yes (Death, Other)
  Sender: FDA-Public Use
  Company Number: US-MERCK-0411USA02653

PATIENT
  Age: 75 Year
  Sex: Male
  Weight: 59 kg

DRUGS (7)
  1. VIOXX [Suspect]
     Indication: OSTEOARTHRITIS
     Route: 048
     Dates: start: 20000101, end: 20020910
  2. ZOLOFT [Concomitant]
     Route: 065
  3. PREDNISONE [Concomitant]
     Route: 065
  4. PREVACID [Concomitant]
     Route: 065
  5. ASPIRIN [Concomitant]
     Route: 065
  6. COUMADIN [Concomitant]
     Route: 065
     Dates: start: 19951001
  7. LOPRESSOR [Concomitant]
     Route: 065

REACTIONS (30)
  - ACUTE MYOCARDIAL INFARCTION [None]
  - AGITATION [None]
  - ATHEROSCLEROSIS [None]
  - BLOOD PRESSURE INCREASED [None]
  - BRADYCARDIA [None]
  - CARDIOGENIC SHOCK [None]
  - CARDIOMEGALY [None]
  - CONFUSIONAL STATE [None]
  - CORONARY ARTERY ATHEROSCLEROSIS [None]
  - CORONARY ARTERY OCCLUSION [None]
  - CORONARY ARTERY STENOSIS [None]
  - ELECTROMECHANICAL DISSOCIATION [None]
  - GASTRIC HAEMORRHAGE [None]
  - GASTRIC ULCER [None]
  - GASTROINTESTINAL ISCHAEMIA [None]
  - HAEMATEMESIS [None]
  - HEPATIC CONGESTION [None]
  - HYDROCELE [None]
  - HYPOTENSION [None]
  - LOBAR PNEUMONIA [None]
  - METABOLIC ACIDOSIS [None]
  - NEPHROSCLEROSIS [None]
  - PULMONARY CONGESTION [None]
  - PULMONARY OEDEMA [None]
  - RENAL ATROPHY [None]
  - RESTLESSNESS [None]
  - SUDDEN CARDIAC DEATH [None]
  - UPPER GASTROINTESTINAL HAEMORRHAGE [None]
  - VENTRICULAR FIBRILLATION [None]
  - VENTRICULAR TACHYCARDIA [None]
